FAERS Safety Report 6928816-8 (Version None)
Quarter: 2010Q3

REPORT INFORMATION
  Report Type: 
  Country: None (occurrence: None)
  Receive Date: 20100809
  Receipt Date: 20091023
  Transmission Date: 20110219
  Serious: No
  Sender: FDA-Public Use
  Company Number: US-001063

PATIENT
  Sex: Male

DRUGS (10)
  1. DEGARELIX [Suspect]
     Indication: PRODUCT USED FOR UNKNOWN INDICATION
     Dosage: SUBCUTANEOUS
     Route: 058
     Dates: start: 20091009, end: 20091009
  2. MUCINEX [Concomitant]
  3. NICOTINE [Concomitant]
  4. CARVEDILOL [Concomitant]
  5. OMEPRAZOLE [Concomitant]
  6. FUROSEMIDE [Concomitant]
  7. PREDNISONE [Concomitant]
  8. COMBIVENT [Concomitant]
  9. SERTRALINE HYDROCHLORIDE [Concomitant]
  10. PROPOXYPHENE HCL [Concomitant]

REACTIONS (1)
  - HALLUCINATION [None]
